FAERS Safety Report 21047737 (Version 4)
Quarter: 2022Q4

REPORT INFORMATION
  Report Type: Report from Study
  Country: US (occurrence: US)
  Receive Date: 20220706
  Receipt Date: 20221229
  Transmission Date: 20230113
  Serious: Yes (Hospitalization)
  Sender: FDA-Public Use
  Company Number: US-PFIZER INC-PV202200014759

PATIENT
  Age: 24 Year
  Sex: Male
  Weight: 89.6 kg

DRUGS (5)
  1. VINCRISTINE SULFATE [Suspect]
     Active Substance: VINCRISTINE SULFATE
     Indication: Acute lymphocytic leukaemia
     Dosage: 2 MG
     Route: 042
     Dates: start: 20200814, end: 20220616
  2. METHOTREXATE [Suspect]
     Active Substance: METHOTREXATE
     Indication: Acute lymphocytic leukaemia
     Dosage: 15 MG, TABLET
     Route: 048
     Dates: start: 20200814, end: 20220616
  3. MERCAPTOPURINE [Suspect]
     Active Substance: MERCAPTOPURINE
     Indication: Acute lymphocytic leukaemia
     Dosage: 50 MG, TABLET
     Route: 048
     Dates: start: 20200814, end: 20220616
  4. RUXOLITINIB [Suspect]
     Active Substance: RUXOLITINIB
     Indication: Acute lymphocytic leukaemia
     Dosage: 100 MG, BID, TABLET
     Route: 048
     Dates: start: 20200814, end: 20220616
  5. RUXOLITINIB [Suspect]
     Active Substance: RUXOLITINIB
     Dosage: 100 MG, BID, TABLET
     Dates: start: 20220524, end: 20220606

REACTIONS (1)
  - Pneumonia klebsiella [Recovered/Resolved]

NARRATIVE: CASE EVENT DATE: 20220615
